FAERS Safety Report 6944502-2 (Version None)
Quarter: 2010Q3

REPORT INFORMATION
  Report Type: 
  Country: None (occurrence: None)
  Receive Date: 20100827
  Receipt Date: 20100817
  Transmission Date: 20110219
  Serious: Yes (Other)
  Sender: FDA-Public Use
  Company Number: US-PFIZER INC-2010093477

PATIENT
  Sex: Female
  Weight: 70.295 kg

DRUGS (17)
  1. GEODON [Suspect]
     Indication: SCHIZOPHRENIA
     Dosage: 20 MG, 2X/DAY
     Route: 048
     Dates: start: 20051013
  2. GEODON [Suspect]
     Dosage: 40 MG, 2X/DAY
     Route: 048
     Dates: start: 20050101
  3. GEODON [Suspect]
     Dosage: 60 MG, 2X/DAY
     Route: 048
     Dates: start: 20051105
  4. GEODON [Suspect]
     Dosage: 20 MG, 2X/DAY
     Route: 048
     Dates: start: 20100610
  5. GEODON [Suspect]
     Dosage: 20 MG, 3X/DAY
     Route: 048
     Dates: start: 20100601
  6. ADVAIR DISKUS 100/50 [Concomitant]
     Dosage: UNK
  7. ACETAMINOPHEN [Concomitant]
     Dosage: UNK
  8. MIRALAX [Concomitant]
     Dosage: UNK
  9. TRAZODONE [Concomitant]
     Dosage: 300 MG PER DAY
     Dates: start: 20050101
  10. SORBITOL [Concomitant]
     Dosage: UNK
  11. EXELON [Concomitant]
     Dosage: UNK
  12. LORAZEPAM [Concomitant]
     Dosage: 1 MG DAILY
     Dates: start: 20050101
  13. FOLIC ACID [Concomitant]
     Dosage: 1 MG DAILY
     Dates: start: 20050101
  14. CALCIUM/VITAMINS NOS [Concomitant]
     Dosage: DAILY
     Dates: start: 20050101
  15. GLUCOPHAGE [Concomitant]
     Dosage: 500 MG DAILY
     Dates: start: 20050101
  16. SENOKOT [Concomitant]
     Dosage: UNK
     Dates: start: 20050101
  17. TRILEPTAL [Concomitant]
     Dosage: 600 MG, 2X/DAY
     Dates: start: 20050101

REACTIONS (8)
  - ABNORMAL BEHAVIOUR [None]
  - ACTIVITIES OF DAILY LIVING IMPAIRED [None]
  - COGNITIVE DISORDER [None]
  - DRUG INEFFECTIVE [None]
  - FEELING ABNORMAL [None]
  - SOMNOLENCE [None]
  - SPEECH DISORDER [None]
  - WRONG TECHNIQUE IN DRUG USAGE PROCESS [None]
